FAERS Safety Report 13907880 (Version 1)
Quarter: 2017Q3

REPORT INFORMATION
  Report Type: Spontaneous
  Country: US (occurrence: US)
  Receive Date: 20170825
  Receipt Date: 20170825
  Transmission Date: 20171127
  Serious: No
  Sender: FDA-Public Use
  Company Number: US-ROCHE-1120308

PATIENT
  Sex: Female
  Weight: 109.87 kg

DRUGS (1)
  1. NUTROPIN [Suspect]
     Active Substance: SOMATROPIN
     Indication: HYPOPITUITARISM
     Dosage: DILUTED WITH 2 ML
     Route: 058

REACTIONS (2)
  - Blood cholesterol increased [Unknown]
  - Swelling [Recovered/Resolved]
